FAERS Safety Report 6689109-X (Version None)
Quarter: 2010Q2

REPORT INFORMATION
  Report Type: 
  Country: None (occurrence: None)
  Receive Date: 20100420
  Receipt Date: 20100412
  Transmission Date: 20101027
  Serious: Yes (Hospitalization, Other)
  Sender: FDA-Public Use
  Company Number: US-ABBOTT-10P-163-0637718-00

PATIENT
  Age: 20 Year
  Sex: Female
  Weight: 46.353 kg

DRUGS (13)
  1. NORVIR [Suspect]
     Indication: HIV INFECTION
     Route: 048
     Dates: start: 20070822
  2. ATAZANAVIR [Suspect]
     Indication: HIV INFECTION
     Route: 048
     Dates: start: 20070822
  3. TRUVADA [Suspect]
     Indication: HIV INFECTION
     Dosage: 200/300MG
     Route: 048
     Dates: start: 20081006
  4. ZIAGEN [Suspect]
     Indication: HIV INFECTION
     Route: 048
     Dates: start: 20081008
  5. ISENTRESS [Suspect]
     Indication: HIV INFECTION
     Route: 048
     Dates: start: 20090518
  6. REYATAZ [Concomitant]
     Indication: DRUG USE FOR UNKNOWN INDICATION
     Dates: start: 20070822
  7. BACTRIM [Concomitant]
     Indication: DRUG USE FOR UNKNOWN INDICATION
     Dates: start: 20051029
  8. ZITHROMAX [Concomitant]
     Indication: DRUG USE FOR UNKNOWN INDICATION
     Dates: start: 20080325
  9. NYSTATIN [Concomitant]
     Indication: DRUG USE FOR UNKNOWN INDICATION
     Dosage: MOUTHWASH
     Dates: start: 20090710
  10. PERCOCET [Concomitant]
     Indication: DRUG USE FOR UNKNOWN INDICATION
     Dates: start: 20090710
  11. DIFLUCAN [Concomitant]
     Indication: DRUG USE FOR UNKNOWN INDICATION
     Dates: start: 20090710
  12. NEUPOGEN [Concomitant]
     Indication: DRUG USE FOR UNKNOWN INDICATION
     Dates: start: 20090518, end: 20090717
  13. NEUPOGEN [Concomitant]
     Dates: start: 20090717

REACTIONS (9)
  - DRUG ERUPTION [None]
  - HAEMORRHAGE [None]
  - MASTOIDITIS [None]
  - MUCOSAL INFLAMMATION [None]
  - NEUTROPENIA [None]
  - PELVIC PAIN [None]
  - PHARYNGITIS STREPTOCOCCAL [None]
  - VULVOVAGINAL CANDIDIASIS [None]
  - WEIGHT DECREASED [None]
